FAERS Safety Report 23289005 (Version 1)
Quarter: 2023Q4

REPORT INFORMATION
  Report Type: Spontaneous
  Country: US (occurrence: None)
  Receive Date: 20231212
  Receipt Date: 20231212
  Transmission Date: 20240110
  Serious: Yes (Hospitalization)
  Sender: FDA-Public Use
  Company Number: None

PATIENT
  Age: 57 Year
  Sex: Male

DRUGS (18)
  1. RINVOQ [Suspect]
     Active Substance: UPADACITINIB
     Indication: Dermatitis allergic
     Dosage: FREQUENCY : DAILY;?
     Route: 048
     Dates: start: 20220407
  2. ADVIL [Concomitant]
     Active Substance: IBUPROFEN
  3. AMLODIPINE [Concomitant]
     Active Substance: AMLODIPINE BESYLATE
  4. ASPIRIN [Concomitant]
     Active Substance: ASPIRIN
  5. CLOBETASOL [Concomitant]
     Active Substance: CLOBETASOL
  6. CLONIDINE [Concomitant]
     Active Substance: CLONIDINE
  7. DUPIXENT [Concomitant]
     Active Substance: DUPILUMAB
  8. HYDRALAZINE [Concomitant]
     Active Substance: HYDRALAZINE HYDROCHLORIDE
  9. LISINOPRIL [Concomitant]
     Active Substance: LISINOPRIL
  10. METHYLPREDNISOLONE [Concomitant]
     Active Substance: METHYLPREDNISOLONE
  11. METOPROL SUC [Concomitant]
  12. DEXAMETHASONE\NEOMYCIN\POLYMYXIN B SULFATE [Concomitant]
     Active Substance: DEXAMETHASONE\NEOMYCIN\POLYMYXIN B SULFATE
  13. OSELTAMIVIR [Concomitant]
     Active Substance: OSELTAMIVIR
  14. TAMSULOSIN [Concomitant]
     Active Substance: TAMSULOSIN
  15. TOBRAMYCIN [Concomitant]
     Active Substance: TOBRAMYCIN
  16. WARFARIN [Concomitant]
     Active Substance: WARFARIN
  17. XANAX [Concomitant]
     Active Substance: ALPRAZOLAM
  18. ZYRTEC ALLGY [Concomitant]

REACTIONS (2)
  - Hospitalisation [None]
  - Therapy interrupted [None]

NARRATIVE: CASE EVENT DATE: 20231201
